FAERS Safety Report 24394594 (Version 3)
Quarter: 2024Q4

REPORT INFORMATION
  Report Type: Spontaneous
  Country: US (occurrence: US)
  Receive Date: 20241004
  Receipt Date: 20241018
  Transmission Date: 20250115
  Serious: Yes (Life-Threatening, Hospitalization, Other)
  Sender: NOVO NORDISK
  Company Number: US-NOVOPROD-1292335

PATIENT
  Age: 70 Year
  Sex: Male

DRUGS (4)
  1. NOVOLOG [Suspect]
     Active Substance: INSULIN ASPART
     Dosage: 10-12 UNITS BEFORE EACH MEAL
     Route: 058
  2. NOVOLOG [Suspect]
     Active Substance: INSULIN ASPART
     Dosage: 30 IU, QD(SLIGHT SLIDING SCALE, RESTARTED DOSE)
     Dates: start: 20240912
  3. NOVOLOG [Suspect]
     Active Substance: INSULIN ASPART
     Dosage: 14 IU
     Route: 058
  4. NOVOLOG [Suspect]
     Active Substance: INSULIN ASPART
     Indication: Type 2 diabetes mellitus
     Dosage: 10-12 UNITS BEFORE EACH MEAL
     Route: 058
     Dates: start: 2012

REACTIONS (13)
  - Fall [Unknown]
  - Cystitis [Recovered/Resolved]
  - Diabetic foot [Not Recovered/Not Resolved]
  - Cataract [Not Recovered/Not Resolved]
  - Hearing aid user [Not Recovered/Not Resolved]
  - Memory impairment [Not Recovered/Not Resolved]
  - Asthenia [Not Recovered/Not Resolved]
  - Fatigue [Not Recovered/Not Resolved]
  - Blood glucose increased [Recovered/Resolved]
  - Blood glucose increased [Unknown]
  - Diabetes mellitus inadequate control [Unknown]
  - Drug ineffective [Recovered/Resolved]
  - Expired product administered [Unknown]

NARRATIVE: CASE EVENT DATE: 20140101
